FAERS Safety Report 8965912 (Version 1)
Quarter: 2012Q4

REPORT INFORMATION
  Report Type: Report from Study
  Country: US (occurrence: US)
  Receive Date: 20121217
  Receipt Date: 20121217
  Transmission Date: 20130627
  Serious: No
  Sender: FDA-Public Use
  Company Number: US-ABBOTT-12P-163-0977971-00

PATIENT
  Age: 63 Year
  Sex: Male
  Weight: 94.43 kg

DRUGS (7)
  1. TRILIPIX [Suspect]
     Indication: BLOOD CHOLESTEROL
     Dates: start: 2010
  2. GLYBURIDE W/METFORMIN [Concomitant]
     Indication: DIABETES MELLITUS
  3. JANUVIA [Concomitant]
     Indication: DIABETES MELLITUS
  4. FLUOXETINE [Concomitant]
     Indication: ANXIETY
  5. APO PRAVASTATIN [Concomitant]
     Indication: BLOOD CHOLESTEROL
  6. LISINOPRIL HCT [Concomitant]
     Indication: BLOOD PRESSURE
  7. ASPIRIN [Concomitant]
     Indication: CARDIOVASCULAR EVENT PROPHYLAXIS

REACTIONS (1)
  - Nervousness [Recovered/Resolved]
